FAERS Safety Report 5001200-2 (Version None)
Quarter: 2006Q2

REPORT INFORMATION
  Report Type: 
  Country: None (occurrence: None)
  Receive Date: 20060501
  Receipt Date: 20060420
  Transmission Date: 20061013
  Serious: Yes (Other)
  Sender: FDA-Public Use
  Company Number: 2006056227

PATIENT
  Age: 19 Year
  Sex: Male

DRUGS (3)
  1. ZOLOFT [Suspect]
     Indication: OBSESSIVE-COMPULSIVE DISORDER
     Dosage: 50 MG
     Dates: start: 20051001
  2. ZOLOFT [Suspect]
     Indication: PANIC REACTION
     Dosage: 50 MG
     Dates: start: 20051001
  3. GEODON [Suspect]
     Indication: BIPOLAR DISORDER
     Dosage: 160 MG (160 MG, 1IN 1 D),
     Dates: start: 20060414, end: 20060417

REACTIONS (8)
  - BIPOLAR DISORDER [None]
  - CONDITION AGGRAVATED [None]
  - IMPAIRED DRIVING ABILITY [None]
  - INSOMNIA [None]
  - MUSCLE SPASMS [None]
  - PANIC ATTACK [None]
  - SOMNOLENCE [None]
  - THINKING ABNORMAL [None]
